FAERS Safety Report 13148668 (Version 2)
Quarter: 2017Q1

REPORT INFORMATION
  Report Type: Report from Study
  Country: US (occurrence: US)
  Receive Date: 20170124
  Receipt Date: 20170124
  Transmission Date: 20170428
  Serious: No
  Sender: FDA-Public Use
  Company Number: US-AMGEN-USASL2016177091

PATIENT
  Sex: Male

DRUGS (1)
  1. REPATHA [Suspect]
     Active Substance: EVOLOCUMAB
     Indication: BLOOD CHOLESTEROL INCREASED
     Dosage: 140 MG/ (2MONTH), UNK
     Route: 065

REACTIONS (4)
  - Musculoskeletal pain [Unknown]
  - Contusion [Unknown]
  - Victim of spousal abuse [Unknown]
  - Feeling abnormal [Unknown]
